FAERS Safety Report 23608237 (Version 1)
Quarter: 2024Q1

REPORT INFORMATION
  Report Type: Spontaneous
  Country: DK (occurrence: DK)
  Receive Date: 20240307
  Receipt Date: 20240307
  Transmission Date: 20240410
  Serious: Yes (Hospitalization, Other)
  Sender: FDA-Public Use
  Company Number: DK-ORIFARM GENERICS A/S-2024DK000220

PATIENT
  Age: 39 Year
  Sex: Male

DRUGS (1)
  1. METHYLPHENIDATE HYDROCHLORIDE [Suspect]
     Active Substance: METHYLPHENIDATE HYDROCHLORIDE
     Indication: Attention deficit hyperactivity disorder
     Dosage: UNK
     Route: 065

REACTIONS (5)
  - Splenic artery thrombosis [Unknown]
  - Artery dissection [Unknown]
  - Splenic infarction [Recovered/Resolved]
  - Thrombosis [Recovered/Resolved]
  - Abdominal pain [Recovered/Resolved]
